FAERS Safety Report 4747144-2 (Version None)
Quarter: 2005Q3

REPORT INFORMATION
  Report Type: 
  Country: None (occurrence: None)
  Receive Date: 20050815
  Receipt Date: 20040629
  Transmission Date: 20060218
  Serious: Yes (Hospitalization)
  Sender: FDA-Public Use
  Company Number: MEDI-0002075

PATIENT
  Sex: Female

DRUGS (10)
  1. SYNAGIS [Suspect]
     Indication: ANTIVIRAL PROPHYLAXIS
     Dosage: 1 IN 30 D, INTRAMUSCULAR
     Route: 030
     Dates: start: 20031119
  2. SYNAGIS [Suspect]
     Dates: start: 20031231
  3. SYNAGIS [Suspect]
     Dates: start: 20040126
  4. SYNAGIS [Suspect]
     Dates: start: 20040227
  5. SYNAGIS [Suspect]
     Dates: start: 20040420
  6. SYNAGIS [Suspect]
  7. SYNAGIS [Suspect]
  8. SYNAGIS [Suspect]
  9. SYNAGIS [Suspect]
  10. SYNAGIS [Suspect]
     Dates: start: 20040322

REACTIONS (1)
  - RESPIRATORY SYNCYTIAL VIRUS INFECTION [None]
